FAERS Safety Report 10153483 (Version 3)
Quarter: 2014Q2

REPORT INFORMATION
  Report Type: Spontaneous
  Country: IT (occurrence: IT)
  Receive Date: 20140505
  Receipt Date: 20140624
  Transmission Date: 20141212
  Serious: Yes (Hospitalization)
  Sender: FDA-Public Use
  Company Number: IT-BRISTOL-MYERS SQUIBB COMPANY-20672036

PATIENT
  Age: 58 Year
  Sex: Male

DRUGS (14)
  1. ORENCIA FOR INJ 250 MG/VIAL [Suspect]
     Indication: RHEUMATOID ARTHRITIS
     Route: 042
     Dates: start: 20130726, end: 20140313
  2. AMIODARONE HCL [Concomitant]
     Dosage: 1 DF = 1 UNIT.TAB
     Route: 048
     Dates: start: 20090101, end: 20140512
  3. NEXIUM [Concomitant]
     Indication: PROPHYLAXIS AGAINST GASTROINTESTINAL ULCER
     Dosage: TAB
     Route: 048
     Dates: start: 20120101, end: 20140512
  4. LEVEMIR [Concomitant]
     Indication: DIABETES MELLITUS
     Dosage: INJECTION SOLUTION.
     Route: 058
     Dates: start: 20120101, end: 20140512
  5. SEQUACOR [Concomitant]
     Indication: MYOCARDIAL ISCHAEMIA
     Dosage: 1 DF= 1 UNIT.TABS
     Route: 048
     Dates: start: 20120101, end: 20140512
  6. LASIX [Concomitant]
     Indication: MYOCARDIAL ISCHAEMIA
     Dosage: TABS.
     Route: 048
     Dates: start: 20030101, end: 20140512
  7. TACHIPIRINA [Concomitant]
     Dosage: TABS.
     Route: 048
     Dates: start: 20130101, end: 20140512
  8. ASCRIPTIN [Concomitant]
     Indication: MYOCARDIAL ISCHAEMIA
     Dosage: 1 DF = 2 UNIT.TABS
     Route: 048
     Dates: start: 20030101, end: 20140512
  9. ALDACTONE [Concomitant]
     Dosage: TABS
     Dates: start: 20120101, end: 20140512
  10. ESAPENT [Concomitant]
     Indication: DYSLIPIDAEMIA
     Dosage: 1 DF= 1 UNIT.CAPS.
     Route: 048
     Dates: start: 20130101, end: 20140512
  11. NATECAL D [Concomitant]
     Indication: OSTEOPOROSIS
     Dosage: 1 DF= 1 UNIT.TABS
     Route: 048
     Dates: start: 20120101, end: 20140512
  12. CRESTOR [Concomitant]
     Indication: DYSLIPIDAEMIA
     Dosage: 1 DF = 1 UNIT.TABS
     Route: 048
     Dates: start: 20120101, end: 20140512
  13. BIFRIL [Concomitant]
     Indication: MYOCARDIAL ISCHAEMIA
     Dosage: 1 DF= 1UNIT.TABS
     Route: 048
     Dates: start: 20120101, end: 20140512
  14. SINTROM [Concomitant]
     Indication: THROMBOSIS PROPHYLAXIS
     Dosage: TABS.
     Dates: start: 20030101, end: 20140512

REACTIONS (2)
  - Cardiac ventricular thrombosis [Recovering/Resolving]
  - Acute coronary syndrome [Recovering/Resolving]
